FAERS Safety Report 17958698 (Version 1)
Quarter: 2020Q2

REPORT INFORMATION
  Report Type: Spontaneous
  Country: NL (occurrence: NL)
  Receive Date: 20200630
  Receipt Date: 20200630
  Transmission Date: 20200714
  Serious: Yes (Hospitalization)
  Sender: FDA-Public Use
  Company Number: NL-PFIZER INC-2020249924

PATIENT
  Age: 23 Year
  Sex: Male

DRUGS (7)
  1. DHEA [Concomitant]
     Active Substance: PRASTERONE
     Dosage: 1 DF, 1X/DAY
  2. MINRIN [Concomitant]
     Active Substance: DESMOPRESSIN ACETATE
     Dosage: 2 DF, 1X/DAY
     Route: 048
  3. GENOTROPIN [Suspect]
     Active Substance: SOMATROPIN
     Dosage: 1 DF, 1X/DAY (VARIABLE)
     Route: 058
     Dates: end: 20010416
  4. THYRAX [LEVOTHYROXINE] [Concomitant]
     Dosage: 3 DF, 1X/DAY (325UG)
     Route: 048
  5. TESTOSTERON [TESTOSTERONE] [Concomitant]
     Dosage: 1 DF, 1X/DAY
     Route: 062
  6. HYDROCORTISON [HYDROCORTISONE] [Concomitant]
     Dosage: 3 DF, 1X/DAY (10+5+5 MG)
     Route: 048
  7. TRYPTOPHAN [TRYPTOPHAN, L-] [Concomitant]
     Active Substance: TRYPTOPHAN
     Dosage: 1 DF, 1X/DAY (1 DD 0,6)
     Route: 065

REACTIONS (1)
  - Polyarthritis [Recovered/Resolved]

NARRATIVE: CASE EVENT DATE: 19950701
